FAERS Safety Report 4352823-5 (Version None)
Quarter: 2004Q2

REPORT INFORMATION
  Report Type: 
  Country: None (occurrence: None)
  Receive Date: 20040429
  Receipt Date: 20040423
  Transmission Date: 20050107
  Serious: Yes (Hospitalization)
  Sender: FDA-Public Use
  Company Number: 2004UW03249

PATIENT
  Age: 70 Year
  Sex: Male
  Weight: 66.2252 kg

DRUGS (3)
  1. IRESSA [Suspect]
     Indication: LUNG NEOPLASM MALIGNANT
     Dosage: 250 MG QD PO
     Route: 048
     Dates: start: 20031101
  2. PLURINEL [Concomitant]
  3. CELEXA [Concomitant]

REACTIONS (1)
  - SUBDURAL HAEMATOMA [None]
